FAERS Safety Report 17572725 (Version 3)
Quarter: 2022Q2

REPORT INFORMATION
  Report Type: Other
  Country: US (occurrence: None)
  Receive Date: 20200323
  Receipt Date: 20220418
  Transmission Date: 20220721
  Serious: Yes (Other)
  Sender: FDA-Public Use
  Company Number: US-ROCHE-2568583

PATIENT
  Sex: Female
  Weight: 100.79 kg

DRUGS (1)
  1. ACTEMRA [Suspect]
     Active Substance: TOCILIZUMAB
     Indication: Rheumatoid arthritis
     Route: 058
     Dates: start: 2013

REACTIONS (3)
  - Brain neoplasm benign [Unknown]
  - Spinal cord compression [Not Recovered/Not Resolved]
  - Arthralgia [Recovered/Resolved]
